FAERS Safety Report 8866879 (Version 1)
Quarter: 2012Q4

REPORT INFORMATION
  Report Type: 
  Country: US (occurrence: US)
  Receive Date: 20121025
  Receipt Date: 20121025
  Transmission Date: 20130627
  Serious: No
  Sender: FDA-Public Use
  Company Number: US-AMGEN-USASP2012013677

PATIENT
  Sex: Male

DRUGS (3)
  1. ENBREL [Suspect]
     Indication: PRODUCT USED FOR UNKNOWN INDICATION
     Dosage: 50 mg, qwk
     Route: 058
  2. ZYRTEC [Concomitant]
     Dosage: 10 mg, UNK
  3. MULTIVITAMIN                       /00097801/ [Suspect]

REACTIONS (3)
  - Arthropod bite [Unknown]
  - Infected bites [Unknown]
  - Pharyngitis streptococcal [Unknown]
